FAERS Safety Report 6994868-2 (Version None)
Quarter: 2010Q3

REPORT INFORMATION
  Report Type: 
  Country: None (occurrence: None)
  Receive Date: 20100917
  Receipt Date: 20081121
  Transmission Date: 20110219
  Serious: Yes (Other)
  Sender: FDA-Public Use
  Company Number: HQWYE412023JUL04

PATIENT
  Sex: Female
  Weight: 74.91 kg

DRUGS (8)
  1. PREMPRO [Suspect]
     Indication: OSTEOPOROSIS
     Dosage: NOT SPECIFIED
     Route: 048
     Dates: start: 19950901, end: 19971201
  2. PROVERA [Suspect]
     Dosage: NOT SPECIFIED
     Route: 048
     Dates: start: 19980301, end: 20000601
  3. ASPIRIN [Concomitant]
  4. ESTROGEN NOS [Suspect]
  5. MEDROXYPROGESTERONE ACETATE [Suspect]
  6. SYNTHROID [Concomitant]
  7. PREMARIN [Suspect]
  8. OGEN [Suspect]
     Indication: OSTEOPOROSIS
     Dosage: NOT SPECIFIED
     Route: 048
     Dates: start: 19980301, end: 20000601

REACTIONS (1)
  - BREAST CANCER [None]
